FAERS Safety Report 16321776 (Version 1)
Quarter: 2019Q2

REPORT INFORMATION
  Report Type: Spontaneous
  Country: US (occurrence: US)
  Receive Date: 20190516
  Receipt Date: 20190516
  Transmission Date: 20190711
  Serious: Yes (Hospitalization)
  Sender: FDA-Public Use
  Company Number: US-TEVA-2019-US-1049688

PATIENT
  Age: 59 Year
  Sex: Male

DRUGS (3)
  1. TRANEXAMIC ACID. [Suspect]
     Active Substance: TRANEXAMIC ACID
     Indication: PROCOAGULANT THERAPY
     Dosage: A SECOND DOSE WAS ADMINISTERED 10 MIN LATER.
     Route: 040
  2. PROPOFOL. [Suspect]
     Active Substance: PROPOFOL
     Indication: SEDATIVE THERAPY
     Route: 065
  3. ASPIRIN. [Concomitant]
     Active Substance: ASPIRIN
     Indication: ANTIPLATELET THERAPY
     Dosage: 81 MILLIGRAM DAILY;
     Route: 065

REACTIONS (6)
  - Hypotension [Not Recovered/Not Resolved]
  - Systolic dysfunction [Unknown]
  - Ventricular hypokinesia [Unknown]
  - Acute myocardial infarction [Unknown]
  - Arterial occlusive disease [Recovered/Resolved]
  - Vascular stent thrombosis [Recovered/Resolved]
